FAERS Safety Report 18404579 (Version 1)
Quarter: 2020Q4

REPORT INFORMATION
  Report Type: Spontaneous
  Country: US (occurrence: US)
  Receive Date: 20201018
  Receipt Date: 20201018
  Transmission Date: 20210114
  Serious: Yes (Other)
  Sender: FDA-Public Use
  Company Number: None

PATIENT
  Age: 35 Year
  Sex: Female
  Weight: 58.05 kg

DRUGS (3)
  1. HAND SANITIZER NOS [Suspect]
     Active Substance: ALCOHOL\AVOBENZONE\HOMOSALATE\OCTISALATE\OCTOCRYLENE\OXYBENZONE OR ALCOHOL\HOMOSALATE\OCTINOXATE\OCTISALATE\OXYBENZONE OR ALCOHOL\NAPHAZOLINE HYDROCHLORIDE\POLYETHYLENE GLYCOL 300 OR CITRIC ACID MONOHYDRATE\COCAMIDOPROPYL BETAINE OR ISOPROPYL ALCOHOL
     Indication: COVID-19 PROPHYLAXIS
     Dates: start: 20201018, end: 20201018
  2. ALBUTEROL INHALER [Concomitant]
     Active Substance: ALBUTEROL
  3. MULTIVITAMINS [Concomitant]
     Active Substance: VITAMINS

REACTIONS (7)
  - Malaise [None]
  - Headache [None]
  - Fatigue [None]
  - Dizziness [None]
  - Ageusia [None]
  - Nausea [None]
  - Tremor [None]

NARRATIVE: CASE EVENT DATE: 20201018
